FAERS Safety Report 15959432 (Version 1)
Quarter: 2019Q1

REPORT INFORMATION
  Report Type: Spontaneous
  Country: US (occurrence: US)
  Receive Date: 20190214
  Receipt Date: 20190214
  Transmission Date: 20190417
  Serious: No
  Sender: FDA-Public Use
  Company Number: US-TEVA-2019-US-1005737

PATIENT
  Sex: Female

DRUGS (1)
  1. AUSTEDO [Suspect]
     Active Substance: DEUTETRABENAZINE
     Indication: DYSTONIA
     Dosage: 18 MILLIGRAM DAILY;
     Route: 048
     Dates: start: 2018

REACTIONS (6)
  - Bronchitis [Unknown]
  - Pyrexia [Unknown]
  - Product use in unapproved indication [Unknown]
  - Malaise [Unknown]
  - Pharyngeal erythema [Unknown]
  - Fatigue [Unknown]
